FAERS Safety Report 4682960-7 (Version None)
Quarter: 2005Q2

REPORT INFORMATION
  Report Type: 
  Country: None (occurrence: None)
  Receive Date: 20050602
  Receipt Date: 20050316
  Transmission Date: 20051028
  Serious: No
  Sender: FDA-Public Use
  Company Number: USA050393596

PATIENT
  Sex: Male

DRUGS (1)
  1. CYMBALTA [Suspect]
     Dosage: 30 MG
     Dates: start: 20050201

REACTIONS (4)
  - CONFUSIONAL STATE [None]
  - DIFFICULTY IN WALKING [None]
  - DIZZINESS [None]
  - IMPAIRED DRIVING ABILITY [None]
